FAERS Safety Report 7544792-1 (Version None)
Quarter: 2011Q2

REPORT INFORMATION
  Report Type: 
  Country: None (occurrence: None)
  Receive Date: 20110614
  Receipt Date: 20110120
  Transmission Date: 20111010
  Serious: Yes (Hospitalization, Other)
  Sender: FDA-Public Use
  Company Number: US-BAYER-201037388NA

PATIENT
  Age: 18 Year
  Sex: Female
  Weight: 94 kg

DRUGS (8)
  1. YASMIN [Suspect]
     Dosage: UNK
     Dates: start: 20060331, end: 20060815
  2. YASMIN [Suspect]
     Dosage: UNK
     Dates: start: 20070903, end: 20071001
  3. YASMIN [Suspect]
     Indication: CONTRACEPTION
     Dosage: UNK
     Route: 048
     Dates: start: 20050602, end: 20051206
  4. SKELAXIN [Concomitant]
     Dosage: 800 MG, UNK
     Dates: start: 20071004
  5. PERCOCET [Concomitant]
     Dosage: UNK
     Dates: start: 20070903
  6. YASMIN [Suspect]
     Dosage: UNK
     Dates: start: 20081125, end: 20090314
  7. IBUPROFEN [Concomitant]
     Dosage: UNK
  8. VICODIN ES [Concomitant]
     Indication: PAIN
     Dosage: UNK UNK, Q4HR
     Route: 048
     Dates: start: 20071004

REACTIONS (13)
  - PULMONARY EMBOLISM [None]
  - PAIN [None]
  - BACK PAIN [None]
  - VOMITING [None]
  - CHOLELITHIASIS [None]
  - WEIGHT INCREASED [None]
  - EMOTIONAL DISTRESS [None]
  - CHOLECYSTITIS CHRONIC [None]
  - ABDOMINAL PAIN UPPER [None]
  - URINARY TRACT INFECTION [None]
  - DYSPNOEA [None]
  - GALLBLADDER CHOLESTEROLOSIS [None]
  - INJURY [None]
